FAERS Safety Report 18517326 (Version 1)
Quarter: 2020Q4

REPORT INFORMATION
  Report Type: Spontaneous
  Country: FI (occurrence: FI)
  Receive Date: 20201118
  Receipt Date: 20201118
  Transmission Date: 20210114
  Serious: Yes (Other)
  Sender: FDA-Public Use
  Company Number: FI-PFIZER INC-2020452745

PATIENT
  Age: 57 Year
  Sex: Female

DRUGS (2)
  1. ATACAND [Concomitant]
     Active Substance: CANDESARTAN CILEXETIL
     Indication: BLOOD PRESSURE ABNORMAL
     Dosage: UNK
  2. SALAZOPYRIN EN [Suspect]
     Active Substance: SULFASALAZINE
     Indication: RHEUMATOID ARTHRITIS
     Dosage: UNK (1 X 2)
     Dates: start: 2009, end: 2016

REACTIONS (4)
  - Nephrotic syndrome [Unknown]
  - Abdominal discomfort [Unknown]
  - Focal segmental glomerulosclerosis [Unknown]
  - Proteinuria [Unknown]

NARRATIVE: CASE EVENT DATE: 2016
